FAERS Safety Report 7719180-5 (Version None)
Quarter: 2011Q3

REPORT INFORMATION
  Report Type: 
  Country: None (occurrence: None)
  Receive Date: 20110830
  Receipt Date: 20110824
  Transmission Date: 20111222
  Serious: Yes (Hospitalization, Other)
  Sender: FDA-Public Use
  Company Number: PHHY2011CH75924

PATIENT
  Age: 58 Year
  Sex: Female
  Weight: 60 kg

DRUGS (11)
  1. LORAZEPAM [Concomitant]
     Dosage: 1-4 MG
  2. IMOVANE [Concomitant]
     Dosage: 7.5 MG, DAILY
  3. CLOZAPINE [Suspect]
     Dosage: 125 MG, DAILY
     Dates: start: 20110602
  4. ESCITALOPRAM [Concomitant]
     Dosage: 5 MG, DAILY
     Dates: start: 20110101
  5. CLOZAPINE [Suspect]
     Dosage: 300 MG, QD
     Route: 048
     Dates: end: 20110616
  6. ESCITALOPRAM [Concomitant]
     Dosage: 20 MG, DAILY
     Dates: start: 20110414, end: 20110616
  7. ESCITALOPRAM [Concomitant]
     Dosage: 10 MG, DAILY
     Dates: start: 20110628
  8. CLOZAPINE [Suspect]
     Indication: SCHIZOPHRENIA
     Dosage: UNK
     Dates: start: 20110513
  9. ABILIFY [Concomitant]
     Dosage: 10-15 MG, DAILY
     Dates: start: 20110412, end: 20110506
  10. AKINETON [Concomitant]
     Dosage: 4 MG, DAILY
     Dates: start: 20110506, end: 20110531
  11. RISPERDAL [Concomitant]
     Dosage: 2- 3 MG, DAILY
     Dates: start: 20101201, end: 20110416

REACTIONS (9)
  - SINUS TACHYCARDIA [None]
  - TRANSAMINASES INCREASED [None]
  - HEPATIC STEATOSIS [None]
  - THROMBOCYTOSIS [None]
  - DIABETES MELLITUS [None]
  - LEUKOCYTOSIS [None]
  - HYPOTENSION [None]
  - C-REACTIVE PROTEIN INCREASED [None]
  - PANCREATIC ENZYMES INCREASED [None]
